FAERS Safety Report 4290539-4 (Version None)
Quarter: 2004Q1

REPORT INFORMATION
  Report Type: 
  Country: None (occurrence: None)
  Receive Date: 20040209
  Receipt Date: 20031023
  Transmission Date: 20041129
  Serious: Yes (Life-Threatening)
  Sender: FDA-Public Use
  Company Number: YITD20030078

PATIENT
  Age: 67 Year
  Sex: Male

DRUGS (14)
  1. MILRINONE LACTATE [Suspect]
     Indication: CORONARY ARTERY SURGERY
     Dosage: 15 UG/KG PER1H
     Dates: start: 20031021, end: 20031023
  2. MILRINONE LACTATE [Suspect]
     Indication: MITRAL VALVE REPLACEMENT
     Dosage: 15 UG/KG PER1H
     Dates: start: 20031021, end: 20031023
  3. DOPAMINE HYDROCHLORIDE [Concomitant]
  4. DOBUTAMINE HCL [Concomitant]
  5. NOREPINEPHRINE [Concomitant]
  6. NICORANDIL [Concomitant]
  7. LIDOCAINE HYDROCHLORIDE [Concomitant]
  8. TRANEXAMIC ACID [Concomitant]
  9. PROPOFOL [Concomitant]
  10. MIDAZOLAM MALEATE [Concomitant]
  11. MORPHINE [Concomitant]
  12. CEFAZOLIN SODIUM [Concomitant]
  13. GENTAMYCIN SULFATE [Concomitant]
  14. FAMOTIDINE [Concomitant]

REACTIONS (6)
  - ATELECTASIS [None]
  - DISSEMINATED INTRAVASCULAR COAGULATION [None]
  - PNEUMONIA [None]
  - PSEUDOMONAL BACTERAEMIA [None]
  - SHOCK [None]
  - SUPRAVENTRICULAR TACHYCARDIA [None]
